FAERS Safety Report 10374866 (Version 1)
Quarter: 2014Q3

REPORT INFORMATION
  Report Type: Spontaneous
  Country: US (occurrence: None)
  Receive Date: 20140808
  Receipt Date: 20140808
  Transmission Date: 20150326
  Serious: Yes (Other)
  Sender: FDA-Public Use
  Company Number: None

PATIENT
  Age: 66 Year
  Sex: Female
  Weight: 77.11 kg

DRUGS (2)
  1. NEULASTA [Suspect]
     Active Substance: PEGFILGRASTIM
     Indication: PROPHYLAXIS
     Dosage: 6 MG, 24 HOURS P CHEMO, INTRAVENOUS
     Route: 042
     Dates: start: 20140726
  2. NEULASTA [Suspect]
     Active Substance: PEGFILGRASTIM
     Indication: NEUTROPENIA
     Dosage: 6 MG, 24 HOURS P CHEMO, INTRAVENOUS
     Route: 042
     Dates: start: 20140726

REACTIONS (9)
  - Headache [None]
  - Neck pain [None]
  - Back pain [None]
  - Bone pain [None]
  - Bedridden [None]
  - Musculoskeletal pain [None]
  - Migraine [None]
  - Myalgia [None]
  - Pain of skin [None]

NARRATIVE: CASE EVENT DATE: 20140726
